FAERS Safety Report 13735196 (Version 1)
Quarter: 2017Q3

REPORT INFORMATION
  Report Type: Spontaneous
  Country: US (occurrence: US)
  Receive Date: 20170710
  Receipt Date: 20170710
  Transmission Date: 20171127
  Serious: No
  Sender: FDA-Public Use
  Company Number: US-ELI_LILLY_AND_COMPANY-US201706007623

PATIENT
  Sex: Female

DRUGS (2)
  1. BASAGLAR [Suspect]
     Active Substance: INSULIN GLARGINE
     Indication: TYPE 2 DIABETES MELLITUS
     Dosage: 100 IU, EACH MORNING
     Route: 065
     Dates: start: 20170610
  2. BASAGLAR [Suspect]
     Active Substance: INSULIN GLARGINE
     Dosage: 100 IU, EACH EVENING
     Route: 065
     Dates: start: 20170610

REACTIONS (2)
  - Injury associated with device [Recovered/Resolved]
  - Underdose [Recovered/Resolved]
